FAERS Safety Report 18361000 (Version 5)
Quarter: 2020Q4

REPORT INFORMATION
  Report Type: Spontaneous
  Country: US (occurrence: US)
  Receive Date: 20201008
  Receipt Date: 20201119
  Transmission Date: 20210114
  Serious: Yes (Other)
  Sender: FDA-Public Use
  Company Number: US-BIOGEN-2020BI00930854

PATIENT
  Age: 47 Year
  Sex: Male

DRUGS (3)
  1. VUMERITY [Suspect]
     Active Substance: DIROXIMEL FUMARATE
     Indication: MULTIPLE SCLEROSIS
     Route: 065
  2. VUMERITY [Suspect]
     Active Substance: DIROXIMEL FUMARATE
     Route: 048
  3. VUMERITY [Suspect]
     Active Substance: DIROXIMEL FUMARATE
     Route: 048
     Dates: start: 20200928

REACTIONS (12)
  - Insomnia [Recovered/Resolved]
  - Tachyphrenia [Recovered/Resolved]
  - Asthenia [Not Recovered/Not Resolved]
  - Psychotic symptom [Unknown]
  - Thinking abnormal [Unknown]
  - Drug intolerance [Recovered/Resolved]
  - Headache [Recovered/Resolved]
  - Head discomfort [Recovered/Resolved]
  - Flushing [Unknown]
  - Gait disturbance [Recovered/Resolved]
  - Anxiety [Unknown]
  - Motor dysfunction [Recovered/Resolved]

NARRATIVE: CASE EVENT DATE: 202009
